FAERS Safety Report 25749453 (Version 2)
Quarter: 2025Q3

REPORT INFORMATION
  Report Type: Spontaneous
  Country: US (occurrence: US)
  Receive Date: 20250902
  Receipt Date: 20250915
  Transmission Date: 20251020
  Serious: No
  Sender: SUNOVION
  Company Number: US-SMPA-2025SPA010967

PATIENT
  Age: 62 Year
  Sex: Male

DRUGS (15)
  1. ORGOVYX [Suspect]
     Active Substance: RELUGOLIX
     Indication: Prostate cancer
     Route: 048
     Dates: start: 20250712, end: 20250712
  2. ORGOVYX [Suspect]
     Active Substance: RELUGOLIX
     Route: 048
  3. BICALUTAMIDE [Concomitant]
     Active Substance: BICALUTAMIDE
  4. SENNA [Concomitant]
     Active Substance: SENNOSIDES
  5. DEXAMETHASONE [Concomitant]
     Active Substance: DEXAMETHASONE
  6. DOCUSATE SODIUM [Concomitant]
     Active Substance: DOCUSATE SODIUM
  7. ERGOCALCIFEROL [Concomitant]
     Active Substance: ERGOCALCIFEROL
  8. FOLIC ACID [Concomitant]
     Active Substance: FOLIC ACID
  9. GABAPENTIN [Concomitant]
     Active Substance: GABAPENTIN
  10. METHOCARBAMOL [Concomitant]
     Active Substance: METHOCARBAMOL
  11. OXYCODONE [Concomitant]
     Active Substance: OXYCODONE
  12. PANTOPRAZOLE [Concomitant]
     Active Substance: PANTOPRAZOLE
  13. TAMSULOSIN [Concomitant]
     Active Substance: TAMSULOSIN
  14. TYLENOL [Concomitant]
     Active Substance: ACETAMINOPHEN
  15. SULFAMETHOXAZOLE AND TRIMETHOPRIM [Concomitant]
     Active Substance: SULFAMETHOXAZOLE\TRIMETHOPRIM

REACTIONS (3)
  - Joint swelling [Unknown]
  - Somnolence [Unknown]
  - Dizziness [Unknown]

NARRATIVE: CASE EVENT DATE: 20250821
